FAERS Safety Report 5713933-0 (Version None)
Quarter: 2008Q2

REPORT INFORMATION
  Report Type: 
  Country: None (occurrence: None)
  Receive Date: 20080423
  Receipt Date: 20080415
  Transmission Date: 20081010
  Serious: Yes (Hospitalization, Disabling)
  Sender: FDA-Public Use
  Company Number: US-WYE-H03632108

PATIENT
  Sex: Male
  Weight: 79.45 kg

DRUGS (1)
  1. TYGACIL [Suspect]
     Route: 042
     Dates: start: 20080129, end: 20080206

REACTIONS (2)
  - ACUTE HEPATIC FAILURE [None]
  - HEPATIC FUNCTION ABNORMAL [None]
